FAERS Safety Report 10272682 (Version 2)
Quarter: 2014Q3

REPORT INFORMATION
  Report Type: Spontaneous
  Country: JP (occurrence: JP)
  Receive Date: 20140702
  Receipt Date: 20140702
  Transmission Date: 20150326
  Serious: Yes (Other)
  Sender: FDA-Public Use
  Company Number: PHHY2014JP079065

PATIENT
  Age: 34 Year
  Sex: Male

DRUGS (3)
  1. DASATINIB [Concomitant]
     Active Substance: DASATINIB
  2. NILOTINIB [Suspect]
     Active Substance: NILOTINIB
     Indication: CHRONIC MYELOID LEUKAEMIA
     Route: 048
  3. IMATINIB [Concomitant]
     Active Substance: IMATINIB

REACTIONS (5)
  - White blood cell count decreased [Unknown]
  - Rash [Recovering/Resolving]
  - Gene mutation [Unknown]
  - Chronic myeloid leukaemia recurrent [Unknown]
  - Platelet count decreased [Unknown]
